FAERS Safety Report 5954557-X (Version None)
Quarter: 2008Q4

REPORT INFORMATION
  Report Type: 
  Country: None (occurrence: None)
  Receive Date: 20081117
  Receipt Date: 20081105
  Transmission Date: 20090506
  Serious: Yes (Hospitalization, Other)
  Sender: FDA-Public Use
  Company Number: US-AMGEN-US315776

PATIENT
  Sex: Male
  Weight: 70.8 kg

DRUGS (6)
  1. NPLATE [Suspect]
     Indication: IDIOPATHIC THROMBOCYTOPENIC PURPURA
     Dates: start: 20080926, end: 20081024
  2. CEREFOLIN [Concomitant]
     Route: 048
  3. FLAX SEED OIL [Concomitant]
  4. IRON [Concomitant]
  5. CENTRUM SILVER [Concomitant]
     Route: 048
  6. METFORMIN HCL [Concomitant]

REACTIONS (5)
  - DYSARTHRIA [None]
  - IDIOPATHIC THROMBOCYTOPENIC PURPURA [None]
  - MUSCULAR WEAKNESS [None]
  - PYREXIA [None]
  - SUBDURAL HAEMATOMA [None]
